FAERS Safety Report 5460987-5 (Version None)
Quarter: 2007Q3

REPORT INFORMATION
  Report Type: 
  Country: None (occurrence: None)
  Receive Date: 20070822
  Receipt Date: 20070405
  Transmission Date: 20080115
  Serious: Yes (Other)
  Sender: FDA-Public Use
  Company Number: 2007027965

PATIENT

DRUGS (1)
  1. AMLODIPINE [Suspect]

REACTIONS (2)
  - SWELLING [None]
  - SWOLLEN TONGUE [None]
